FAERS Safety Report 8342781-0 (Version None)
Quarter: 2012Q2

REPORT INFORMATION
  Report Type: 
  Country: None (occurrence: None)
  Receive Date: 20120503
  Receipt Date: 20120420
  Transmission Date: 20120825
  Serious: Yes (Hospitalization)
  Sender: FDA-Public Use
  Company Number: 2012MA005467

PATIENT
  Age: 62 Year
  Sex: Female

DRUGS (12)
  1. LANTUS [Concomitant]
  2. RAMIPRIL [Suspect]
     Dosage: PO
     Route: 048
     Dates: end: 20110519
  3. VALSARTAN [Suspect]
     Dosage: PO
     Route: 048
     Dates: end: 20110519
  4. NITROGLYCERIN [Concomitant]
  5. ATORVASTATIN [Concomitant]
  6. REPAGLINIDE [Concomitant]
  7. GLUCOPHAGE [Concomitant]
  8. PLAVIX [Concomitant]
  9. PANTOPRAZOLE SODIUM [Concomitant]
  10. KARDEGIC (NO PREF. NAME) [Suspect]
     Dosage: 75 MG, QD, PO
     Route: 048
  11. FUROSEMIDE [Suspect]
     Dosage: 20 MG, QD, PO
     Route: 048
     Dates: end: 20110519
  12. BISOPROLOL FUMARATE [Concomitant]

REACTIONS (3)
  - PAIN [None]
  - RENAL FAILURE ACUTE [None]
  - GENERAL PHYSICAL HEALTH DETERIORATION [None]
